FAERS Safety Report 11415135 (Version 1)
Quarter: 2015Q3

REPORT INFORMATION
  Report Type: Spontaneous
  Country: US (occurrence: US)
  Receive Date: 20150825
  Receipt Date: 20150825
  Transmission Date: 20151125
  Serious: Yes (Other)
  Sender: FDA-Public Use
  Company Number: US-JNJFOC-20150813015

PATIENT
  Age: 71 Year
  Sex: Female
  Weight: 100.25 kg

DRUGS (2)
  1. REMICADE [Concomitant]
     Active Substance: INFLIXIMAB
     Indication: RHEUMATOID ARTHRITIS
     Route: 065
     Dates: start: 20150714
  2. BENADRYL [Suspect]
     Active Substance: DIPHENHYDRAMINE HYDROCHLORIDE
     Indication: PREMEDICATION
     Route: 065
     Dates: start: 20150714

REACTIONS (3)
  - Somnolence [Unknown]
  - International normalised ratio increased [Unknown]
  - Product use issue [Unknown]

NARRATIVE: CASE EVENT DATE: 20150714
